FAERS Safety Report 10760895 (Version 1)
Quarter: 2015Q1

REPORT INFORMATION
  Report Type: Report from Study
  Country: US (occurrence: US)
  Receive Date: 20150204
  Receipt Date: 20150204
  Transmission Date: 20150721
  Serious: Yes (Hospitalization, Other)
  Sender: FDA-Public Use
  Company Number: US-ABBVIE-15K-163-1339079-00

PATIENT
  Age: 27 Year
  Sex: Male
  Weight: 98.52 kg

DRUGS (2)
  1. HUMIRA [Suspect]
     Active Substance: ADALIMUMAB
     Indication: PSORIASIS
     Dosage: LOADING DOSE
     Route: 058
     Dates: start: 201310, end: 201310
  2. HUMIRA [Suspect]
     Active Substance: ADALIMUMAB
     Route: 058
     Dates: start: 201311, end: 201402

REACTIONS (3)
  - Benign hepatic neoplasm [Recovered/Resolved]
  - Hepatic steatosis [Unknown]
  - Sinusitis [Unknown]

NARRATIVE: CASE EVENT DATE: 201310
